FAERS Safety Report 10166940 (Version 2)
Quarter: 2014Q2

REPORT INFORMATION
  Report Type: Spontaneous
  Country: US (occurrence: US)
  Receive Date: 20140512
  Receipt Date: 20140519
  Transmission Date: 20141212
  Serious: No
  Sender: FDA-Public Use
  Company Number: US-009507513-1405USA001505

PATIENT
  Age: 63 Year
  Sex: Female

DRUGS (19)
  1. OXYTROL FOR WOMEN [Suspect]
     Indication: INCONTINENCE
     Dosage: UNK, UNKNOWN
     Route: 062
     Dates: start: 201404, end: 201404
  2. NEXIUM [Concomitant]
     Indication: GASTROOESOPHAGEAL REFLUX DISEASE
     Dosage: UNK, UNKNOWN
  3. MELOXICAM [Concomitant]
     Indication: INFLAMMATION
     Dosage: UNK, UNKNOWN
  4. ESTRADIOL [Concomitant]
     Indication: PRODUCT USED FOR UNKNOWN INDICATION
     Dosage: UNK, UNKNOWN
  5. LYRICA [Concomitant]
     Indication: BACK DISORDER
     Dosage: UNK, UNKNOWN
  6. TIZANIDINE HYDROCHLORIDE [Concomitant]
     Indication: BACK DISORDER
     Dosage: UNK, UNKNOWN
  7. CYMBALTA [Concomitant]
     Indication: BACK DISORDER
     Dosage: UNK, UNKNOWN
  8. ASPIRIN [Concomitant]
     Indication: CARDIAC DISORDER
     Dosage: UNK, UNKNOWN
  9. CALCIUM (UNSPECIFIED) [Concomitant]
     Indication: PRODUCT USED FOR UNKNOWN INDICATION
     Dosage: UNK, UNKNOWN
  10. CHONDROITIN SULFATE SODIUM (+) GLUCOSAMINE SULFATE [Concomitant]
     Indication: ARTHROPATHY
     Dosage: UNK, UNKNOWN
  11. VITAMINS (UNSPECIFIED) [Concomitant]
     Indication: PRODUCT USED FOR UNKNOWN INDICATION
     Dosage: UNK, UNKNOWN
  12. CHOLECALCIFEROL [Concomitant]
     Indication: PRODUCT USED FOR UNKNOWN INDICATION
     Dosage: UNK, UNKNOWN
  13. RED YEAST [Concomitant]
     Indication: BLOOD CHOLESTEROL ABNORMAL
     Dosage: UNK, UNKNOWN
  14. BIOTIN [Concomitant]
     Indication: PRODUCT USED FOR UNKNOWN INDICATION
     Dosage: UNK, UNKNOWN
  15. TYLENOL ARTHRITIS PAIN [Concomitant]
     Indication: ARTHRALGIA
     Dosage: UNK, UNKNOWN
  16. HYALURONIC ACID [Concomitant]
     Indication: ARTHRALGIA
     Dosage: UNK, UNKNOWN
  17. OMEGA-3 MARINE TRIGLYCERIDES [Concomitant]
     Indication: ARTHRALGIA
     Dosage: UNK, UNKNOWN
  18. AMBIEN [Concomitant]
     Indication: SLEEP DISORDER
     Dosage: UNK, UNKNOWN
  19. ADVIL PM [Concomitant]
     Indication: SLEEP DISORDER
     Dosage: UNK, UNKNOWN

REACTIONS (2)
  - Application site discomfort [Recovered/Resolved]
  - Application site rash [Recovered/Resolved]
